FAERS Safety Report 5443027-3 (Version None)
Quarter: 2007Q3

REPORT INFORMATION
  Report Type: 
  Country: None (occurrence: None)
  Receive Date: 20070905
  Receipt Date: 20070824
  Transmission Date: 20080115
  Serious: Yes (Other)
  Sender: FDA-Public Use
  Company Number: HQWYE699902AUG04

PATIENT
  Sex: Female

DRUGS (1)
  1. PREMPRO [Suspect]

REACTIONS (1)
  - CUTANEOUS LUPUS ERYTHEMATOSUS [None]
